FAERS Safety Report 4698386-6 (Version None)
Quarter: 2005Q2

REPORT INFORMATION
  Report Type: 
  Country: None (occurrence: None)
  Receive Date: 20050621
  Receipt Date: 20050608
  Transmission Date: 20051028
  Serious: Yes (Hospitalization, Other)
  Sender: FDA-Public Use
  Company Number: 2005044854

PATIENT
  Age: 61 Year
  Sex: Female
  Weight: 64 kg

DRUGS (11)
  1. CELEBREX [Suspect]
     Indication: SPINAL DISORDER
     Dosage: 400 MG (200 MG, 2 IN 1 D) ORAL
     Route: 048
     Dates: start: 20030101, end: 20040501
  2. LEVOTHYROXINE [Concomitant]
  3. AMITRIPTYLINE HCL [Concomitant]
  4. ALL OTHER THERAPEUTIC PRODUCTS [Concomitant]
  5. ESOMEPRAZOLE [Concomitant]
  6. LIVIELLA (TIBOLONE) [Concomitant]
  7. BROMAZEPAM [Concomitant]
  8. BISOPROLOL [Concomitant]
  9. MAGNESIUM [Concomitant]
  10. ALL OTHER THERAPEUTIC PRODUCTS [Concomitant]
  11. CALCIUM GLUCONATE [Concomitant]

REACTIONS (10)
  - ANGINA PECTORIS [None]
  - CARDIAC ARREST [None]
  - CARDIAC DISORDER [None]
  - DYSTHYMIC DISORDER [None]
  - HAEMORRHOIDS [None]
  - HYPERTENSIVE HEART DISEASE [None]
  - MENTAL DISORDER [None]
  - PAIN [None]
  - RECTAL PROLAPSE [None]
  - TACHYCARDIA [None]
